FAERS Safety Report 14497181 (Version 2)
Quarter: 2018Q1

REPORT INFORMATION
  Report Type: Report from Study
  Country: ES (occurrence: ES)
  Receive Date: 20180207
  Receipt Date: 20180308
  Transmission Date: 20180509
  Serious: Yes (Hospitalization)
  Sender: FDA-Public Use
  Company Number: ES-ROCHE-2066787

PATIENT
  Age: 63 Year
  Sex: Female
  Weight: 78 kg

DRUGS (2)
  1. OBINUTUZUMAB. [Suspect]
     Active Substance: OBINUTUZUMAB
     Indication: NON-HODGKIN^S LYMPHOMA
     Dosage: ON DAY -7 AS PER PROTOCOL (PRE-TREATMENT)?ON 23/JAN/2018, THE PATIENT RECEIVED THE LAST DOSE OF OBIN
     Route: 042
     Dates: start: 20180123
  2. RO 7082859 (CD20/C3 T-CELL BISPECIFIC MAB) [Suspect]
     Active Substance: INVESTIGATIONAL PRODUCT
     Indication: NON-HODGKIN^S LYMPHOMA
     Dosage: THE MOST RECENT DOSE PRIOR TO THE EVENT ONSET: 30/JAN/2018
     Route: 042
     Dates: start: 20180130

REACTIONS (1)
  - Cytokine release syndrome [Recovered/Resolved]

NARRATIVE: CASE EVENT DATE: 20180131
